FAERS Safety Report 10192836 (Version 2)
Quarter: 2014Q2

REPORT INFORMATION
  Report Type: Report from Study
  Country: US (occurrence: US)
  Receive Date: 20140523
  Receipt Date: 20140602
  Transmission Date: 20141212
  Serious: Yes (Hospitalization)
  Sender: FDA-Public Use
  Company Number: US-ONYX-2014-1115

PATIENT
  Sex: 0

DRUGS (3)
  1. CARFILZOMIB [Suspect]
     Indication: WALDENSTROM^S MACROGLOBULINAEMIA
     Route: 042
     Dates: start: 20140505
  2. ALLOPURINOL [Concomitant]
     Indication: GOUT
  3. DECADRON [Concomitant]
     Indication: WALDENSTROM^S MACROGLOBULINAEMIA

REACTIONS (1)
  - Pericarditis [Recovered/Resolved]
